FAERS Safety Report 7573914-1 (Version None)
Quarter: 2011Q2

REPORT INFORMATION
  Report Type: 
  Country: None (occurrence: None)
  Receive Date: 20110627
  Receipt Date: 20110620
  Transmission Date: 20111010
  Serious: Yes (Other)
  Sender: FDA-Public Use
  Company Number: B0727928A

PATIENT

DRUGS (5)
  1. FAMOTIDINE [Concomitant]
     Route: 048
  2. HEPSERA [Suspect]
     Indication: HEPATITIS B
     Dosage: 10MG PER DAY
     Route: 048
  3. LAMIVUDINE [Suspect]
     Route: 048
  4. LIORESAL [Concomitant]
     Route: 048
  5. RILUTEK [Concomitant]
     Route: 048

REACTIONS (1)
  - MULTIPLE FRACTURES [None]
